FAERS Safety Report 5212387-0 (Version None)
Quarter: 2007Q1

REPORT INFORMATION
  Report Type: 
  Country: None (occurrence: None)
  Receive Date: 20070118
  Receipt Date: 20070109
  Transmission Date: 20070707
  Serious: Yes (Other)
  Sender: FDA-Public Use
  Company Number: JP-PFIZER INC-2007003020

PATIENT
  Age: 64 Year
  Sex: Male

DRUGS (2)
  1. XALATAN [Suspect]
     Route: 031
  2. TIMOPTIC [Suspect]
     Route: 031

REACTIONS (1)
  - EYELID PTOSIS [None]
